FAERS Safety Report 25847550 (Version 1)
Quarter: 2025Q3

REPORT INFORMATION
  Report Type: Spontaneous
  Country: US (occurrence: None)
  Receive Date: 20250924
  Receipt Date: 20250924
  Transmission Date: 20251020
  Serious: Yes (Other)
  Sender: FDA-CTU
  Company Number: None

PATIENT
  Age: 47 Year
  Sex: Female
  Weight: 99 kg

DRUGS (6)
  1. TACROLIMUS [Suspect]
     Active Substance: TACROLIMUS
     Indication: Vitiligo
     Dosage: FREQUENCY : AT BEDTIME;?
     Route: 061
     Dates: start: 20250915, end: 20250917
  2. Yay birth control pill [Concomitant]
  3. VITAMIN D [Concomitant]
     Active Substance: VITAMIN D NOS
  4. B12 [Concomitant]
  5. VITAMINS [Concomitant]
     Active Substance: VITAMINS
  6. CALTRATE [Concomitant]
     Active Substance: CALCIUM CARBONATE

REACTIONS (7)
  - Eye pain [None]
  - Periorbital pain [None]
  - Periorbital disorder [None]
  - Thermal burn [None]
  - Skin discolouration [None]
  - Visual impairment [None]
  - Eye pruritus [None]

NARRATIVE: CASE EVENT DATE: 20250917
